FAERS Safety Report 14746716 (Version 1)
Quarter: 2018Q2

REPORT INFORMATION
  Report Type: Spontaneous
  Country: US (occurrence: US)
  Receive Date: 20180411
  Receipt Date: 20180411
  Transmission Date: 20180711
  Serious: Yes (Hospitalization)
  Sender: FDA-Public Use
  Company Number: US-ACELLA PHARMACEUTICALS, LLC-2045556

PATIENT
  Age: 40 Year
  Sex: Female

DRUGS (1)
  1. BROMPHENIRAMINE MAL, PSEUDOEPHEDRINE HCL, AND DEXTROMETHORPHAN HBR [Suspect]
     Active Substance: BROMPHENIRAMINE MALEATE\DEXTROMETHORPHAN HYDROBROMIDE\PSEUDOEPHEDRINE HYDROCHLORIDE

REACTIONS (5)
  - Affect lability [Recovered/Resolved]
  - Irritability [Recovered/Resolved]
  - Suspiciousness [Recovered/Resolved]
  - Hostility [Recovered/Resolved]
  - Mixed delusion [Recovered/Resolved]
